FAERS Safety Report 7441863-5 (Version None)
Quarter: 2011Q2

REPORT INFORMATION
  Report Type: 
  Country: None (occurrence: None)
  Receive Date: 20110428
  Receipt Date: 20110421
  Transmission Date: 20111010
  Serious: Yes (Death)
  Sender: FDA-Public Use
  Company Number: US-ELI_LILLY_AND_COMPANY-US200904005011

PATIENT
  Age: 7 Year
  Sex: Male
  Weight: 30.385 kg

DRUGS (3)
  1. LEXAPRO [Concomitant]
     Indication: DEPRESSION
     Dosage: 10 MG, 1/2QAM
     Dates: end: 20090101
  2. SYMBYAX [Suspect]
     Indication: IMPULSE-CONTROL DISORDER
     Dosage: 1 D/F (3MG/25MG) QHS
  3. VYVANSE [Concomitant]
     Indication: IMPULSE-CONTROL DISORDER
     Dosage: 30 MG, QD

REACTIONS (4)
  - ANGER [None]
  - COMPLETED SUICIDE [None]
  - SELF INJURIOUS BEHAVIOUR [None]
  - FALL [None]
